FAERS Safety Report 5812774-3 (Version None)
Quarter: 2008Q3

REPORT INFORMATION
  Report Type: 
  Country: None (occurrence: None)
  Receive Date: 20080717
  Receipt Date: 20080709
  Transmission Date: 20090109
  Serious: Yes (Other)
  Sender: FDA-Public Use
  Company Number: RU-AVENTIS-200813538EU

PATIENT
  Age: 57 Year
  Sex: Male
  Weight: 60 kg

DRUGS (4)
  1. ENOXAPARIN SODIUM [Suspect]
     Route: 058
     Dates: start: 20080521, end: 20080530
  2. MERACEF [Concomitant]
     Route: 042
     Dates: start: 20080520
  3. HEPTRAL [Concomitant]
     Route: 042
     Dates: start: 20080520, end: 20080524
  4. OMEPRASOL [Concomitant]
     Route: 048
     Dates: start: 20080520, end: 20080707

REACTIONS (4)
  - ANAEMIA [None]
  - ARRHYTHMIA [None]
  - ENCEPHALOPATHY [None]
  - POST PROCEDURAL HAEMORRHAGE [None]
